FAERS Safety Report 6532395-7 (Version None)
Quarter: 2010Q1

REPORT INFORMATION
  Report Type: 
  Country: None (occurrence: None)
  Receive Date: 20100108
  Receipt Date: 20100103
  Transmission Date: 20100710
  Serious: Yes (Hospitalization)
  Sender: FDA-Public Use
  Company Number: US-AMGEN-QUU383500

PATIENT
  Sex: Female

DRUGS (1)
  1. ENBREL [Suspect]
     Indication: RHEUMATOID ARTHRITIS
     Route: 058
     Dates: start: 20060101

REACTIONS (8)
  - DIZZINESS [None]
  - INFLUENZA [None]
  - MUSCULOSKELETAL PAIN [None]
  - NAUSEA [None]
  - PNEUMONIA [None]
  - PULMONARY MASS [None]
  - STREPTOCOCCAL SEPSIS [None]
  - TACHYCARDIA [None]
